FAERS Safety Report 5306486-2 (Version None)
Quarter: 2007Q2

REPORT INFORMATION
  Report Type: 
  Country: None (occurrence: None)
  Receive Date: 20070416
  Receipt Date: 20070402
  Transmission Date: 20071010
  Serious: Yes (Hospitalization)
  Sender: FDA-Public Use
  Company Number: DSA_29290_2007

PATIENT
  Age: 56 Year
  Sex: Male

DRUGS (8)
  1. ENALAPRIL MALEATE AND HYDROCHLOROTHIAZIDE [Suspect]
     Indication: HYPERTENSION
     Dosage: DF QD PO
     Route: 048
     Dates: end: 20070105
  2. METFORMIN HCL [Suspect]
     Indication: DIABETES MELLITUS NON-INSULIN-DEPENDENT
     Dosage: 1000 MG TID PO
     Route: 048
     Dates: end: 20070105
  3. ACEBUTOL [Concomitant]
  4. ASPIRIN [Concomitant]
  5. ATORVASTATIN CALCIUM [Concomitant]
  6. CLONIDINE [Concomitant]
  7. HYDROCHLOROTHIAZIDE [Concomitant]
  8. INSULIN LISPRO [Concomitant]

REACTIONS (6)
  - BLOOD POTASSIUM INCREASED [None]
  - DEHYDRATION [None]
  - GASTROENTERITIS [None]
  - HAEMODIALYSIS [None]
  - LACTIC ACIDOSIS [None]
  - RENAL FAILURE ACUTE [None]
